FAERS Safety Report 8849053 (Version 2)
Quarter: 2012Q4

REPORT INFORMATION
  Report Type: 
  Country: JP (occurrence: JP)
  Receive Date: 20121019
  Receipt Date: 20121126
  Transmission Date: 20130627
  Serious: Yes (Other)
  Sender: FDA-Public Use
  Company Number: PHHY2012JP093043

PATIENT
  Age: 68 Year
  Sex: Male
  Weight: 71 kg

DRUGS (5)
  1. ZOMETA [Suspect]
     Indication: METASTASES TO BONE
     Dosage: 4 mg, every 4 weeks
     Route: 041
     Dates: start: 20091204, end: 20120525
  2. ZOLADEX [Concomitant]
     Dosage: UNK UKN, UNK
     Route: 058
     Dates: start: 20091218
  3. CASODEX [Concomitant]
     Dosage: 80 mg, UNK
     Route: 048
     Dates: start: 20091204, end: 20101003
  4. ODYNE [Concomitant]
     Dosage: 375 mg, UNK
     Route: 048
     Dates: start: 20101004
  5. ACTOS [Concomitant]
     Dosage: 30 mg, UNK
     Route: 048
     Dates: start: 2009

REACTIONS (8)
  - Sinusitis [Not Recovered/Not Resolved]
  - Osteonecrosis of jaw [Not Recovered/Not Resolved]
  - Exposed bone in jaw [Unknown]
  - Primary sequestrum [Unknown]
  - Gingival bleeding [Unknown]
  - Erythema [Unknown]
  - Swelling [Unknown]
  - Gingival infection [Unknown]
